FAERS Safety Report 9151867 (Version 1)
Quarter: 2013Q1

REPORT INFORMATION
  Report Type: Spontaneous
  Country: US (occurrence: US)
  Receive Date: 20130308
  Receipt Date: 20130308
  Transmission Date: 20140127
  Serious: No
  Sender: FDA-Public Use
  Company Number: US-GLAXOSMITHKLINE-A0998728A

PATIENT
  Age: 55 Year
  Sex: Male

DRUGS (1)
  1. NICORETTE [Suspect]
     Indication: EX-TOBACCO USER
     Dates: start: 20121021, end: 20121023

REACTIONS (6)
  - Swollen tongue [Not Recovered/Not Resolved]
  - Lip swelling [Recovering/Resolving]
  - Hypoaesthesia oral [Unknown]
  - Dysgeusia [Unknown]
  - Hypogeusia [Unknown]
  - Dry mouth [Recovered/Resolved]
